FAERS Safety Report 11726077 (Version 1)
Quarter: 2015Q4

REPORT INFORMATION
  Report Type: Spontaneous
  Country: US (occurrence: US)
  Receive Date: 20151110
  Receipt Date: 20151110
  Transmission Date: 20160304
  Serious: No
  Sender: FDA-Public Use
  Company Number: US-ELI_LILLY_AND_COMPANY-US201110003953

PATIENT
  Age: 47 Year
  Sex: Female

DRUGS (2)
  1. CALCIUM [Concomitant]
     Active Substance: CALCIUM
  2. FORTEO [Suspect]
     Active Substance: TERIPARATIDE
     Indication: OSTEOPOROSIS
     Dosage: 20 UG, QD
     Dates: start: 2010, end: 20110906

REACTIONS (9)
  - Pain [Unknown]
  - Muscle spasms [Unknown]
  - Gait disturbance [Unknown]
  - Back pain [Unknown]
  - Foot fracture [Unknown]
  - Bone disorder [Unknown]
  - Arthritis [Unknown]
  - Intentional product misuse [Unknown]
  - Hand fracture [Unknown]

NARRATIVE: CASE EVENT DATE: 2011
